FAERS Safety Report 7972231-5 (Version None)
Quarter: 2011Q4

REPORT INFORMATION
  Report Type: 
  Country: None (occurrence: None)
  Receive Date: 20111213
  Receipt Date: 20111207
  Transmission Date: 20120403
  Serious: Yes (Other)
  Sender: FDA-Public Use
  Company Number: US-ABBOTT-11P-163-0873388-00

PATIENT
  Sex: Female
  Weight: 72.64 kg

DRUGS (6)
  1. NAPROSYN [Concomitant]
     Indication: RHEUMATOID ARTHRITIS
  2. COUMADIN [Concomitant]
     Indication: THROMBOSIS
  3. NIACIN [Concomitant]
     Indication: PRODUCT USED FOR UNKNOWN INDICATION
  4. HUMIRA [Suspect]
     Indication: RHEUMATOID ARTHRITIS
     Route: 058
     Dates: start: 20070101, end: 20110201
  5. METHOTREXATE [Concomitant]
     Indication: RHEUMATOID ARTHRITIS
  6. PREDNISONE [Concomitant]
     Indication: RHEUMATOID ARTHRITIS

REACTIONS (7)
  - FALL [None]
  - PELVIC FRACTURE [None]
  - SCIATICA [None]
  - BACK PAIN [None]
  - BONE DENSITY DECREASED [None]
  - SPINAL COLUMN STENOSIS [None]
  - UPPER LIMB FRACTURE [None]
